FAERS Safety Report 15814541 (Version 2)
Quarter: 2019Q1

REPORT INFORMATION
  Report Type: Spontaneous
  Country: US (occurrence: US)
  Receive Date: 20190111
  Receipt Date: 20190115
  Transmission Date: 20190417
  Serious: Yes (Other)
  Sender: FDA-Public Use
  Company Number: US-PFIZER INC-2019014096

PATIENT
  Age: 6 Year
  Sex: Male

DRUGS (3)
  1. TRIAMCINOLONE 0.1% [Suspect]
     Active Substance: TRIAMCINOLONE
     Indication: ECZEMA NUMMULAR
     Dosage: UNK
     Route: 061
  2. HYDROCORTISONE ACETATE. [Suspect]
     Active Substance: HYDROCORTISONE ACETATE
     Indication: ECZEMA NUMMULAR
     Dosage: UNK, 2X/DAY
     Route: 061
  3. BETAMETHASONE 0.05% [Suspect]
     Active Substance: BETAMETHASONE
     Indication: ECZEMA NUMMULAR
     Dosage: UNK
     Route: 061

REACTIONS (7)
  - Shared psychotic disorder [Recovered/Resolved]
  - Rebound eczema [Unknown]
  - Intentional product misuse [Recovered/Resolved]
  - Drug dependence [Recovered/Resolved]
  - Perioral dermatitis [Recovered/Resolved]
  - Emotional distress [Recovered/Resolved]
  - Withdrawal syndrome [Recovered/Resolved]
